FAERS Safety Report 25125229 (Version 1)
Quarter: 2025Q1

REPORT INFORMATION
  Report Type: Spontaneous
  Country: CA (occurrence: CA)
  Receive Date: 20250326
  Receipt Date: 20250326
  Transmission Date: 20250408
  Serious: Yes (Death, Life-Threatening, Hospitalization, Disabling, Congenital Anomaly, Other)
  Sender: CHATTEM
  Company Number: CA-SA-2025SA080031

PATIENT
  Age: 40 Year
  Sex: Female

DRUGS (15)
  1. CETIRIZINE HYDROCHLORIDE [Suspect]
     Active Substance: CETIRIZINE HYDROCHLORIDE
     Indication: Rheumatoid arthritis
     Route: 048
  2. CETIRIZINE HYDROCHLORIDE [Suspect]
     Active Substance: CETIRIZINE HYDROCHLORIDE
     Route: 048
  3. ACETAMINOPHEN [Suspect]
     Active Substance: ACETAMINOPHEN
     Indication: Rheumatoid arthritis
     Route: 065
  4. CHOLECALCIFEROL [Suspect]
     Active Substance: CHOLECALCIFEROL
     Indication: Product used for unknown indication
  5. DESOXIMETASONE [Suspect]
     Active Substance: DESOXIMETASONE
     Indication: Rheumatoid arthritis
     Route: 048
  6. DESOXIMETASONE [Suspect]
     Active Substance: DESOXIMETASONE
     Route: 065
  7. FOLIC ACID [Suspect]
     Active Substance: FOLIC ACID
     Indication: Rheumatoid arthritis
     Route: 065
  8. FOLIC ACID [Suspect]
     Active Substance: FOLIC ACID
     Route: 065
  9. FOLIC ACID [Suspect]
     Active Substance: FOLIC ACID
     Route: 065
  10. FOLIC ACID [Suspect]
     Active Substance: FOLIC ACID
     Route: 065
  11. FOLIC ACID [Suspect]
     Active Substance: FOLIC ACID
     Route: 048
  12. FOLIC ACID [Suspect]
     Active Substance: FOLIC ACID
     Route: 048
  13. FOLIC ACID [Suspect]
     Active Substance: FOLIC ACID
     Route: 065
  14. FOLIC ACID [Suspect]
     Active Substance: FOLIC ACID
     Route: 065
  15. TRIAMCINOLONE ACETONIDE [Suspect]
     Active Substance: TRIAMCINOLONE ACETONIDE
     Indication: Rheumatoid arthritis
     Route: 013

REACTIONS (6)
  - Pneumonia [Fatal]
  - Hepatitis [Fatal]
  - Incorrect product administration duration [Fatal]
  - Intentional product use issue [Fatal]
  - Off label use [Fatal]
  - Underdose [Fatal]
